FAERS Safety Report 19533761 (Version 2)
Quarter: 2021Q3

REPORT INFORMATION
  Report Type: Report from Study
  Country: MA (occurrence: MA)
  Receive Date: 20210714
  Receipt Date: 20210809
  Transmission Date: 20211014
  Serious: Yes (Other)
  Sender: FDA-Public Use
  Company Number: NVSC2021MA153280

PATIENT
  Sex: Female

DRUGS (1)
  1. COSENTYX [Suspect]
     Active Substance: SECUKINUMAB
     Indication: PSORIATIC ARTHROPATHY
     Dosage: 150 MG, QMO
     Route: 058
     Dates: start: 20200809

REACTIONS (6)
  - Coma [Unknown]
  - Cardiac disorder [Unknown]
  - Blood disorder [Unknown]
  - Gastrointestinal disorder [Unknown]
  - Anaemia [Unknown]
  - Inflammation [Unknown]
